FAERS Safety Report 4559154-9 (Version None)
Quarter: 2005Q1

REPORT INFORMATION
  Report Type: 
  Country: None (occurrence: None)
  Receive Date: 20050119
  Receipt Date: 20050107
  Transmission Date: 20050727
  Serious: Yes (Hospitalization, Other)
  Sender: FDA-Public Use
  Company Number: 2004118911

PATIENT
  Age: 81 Year
  Sex: Male

DRUGS (6)
  1. SULPERAZON (SULBACTAM, CEFOPERAZONE) [Suspect]
     Indication: PNEUMONIA
     Dosage: 2 GRAM (1 GRAM, 2 IN 1 D), INTRAVENOUS
     Route: 042
     Dates: start: 20041209, end: 20041213
  2. VANCOMYCIN [Concomitant]
  3. MEROPENEM (MEROPENEM) [Concomitant]
  4. ARBEKACIN (ARBEKACIN) [Concomitant]
  5. PN TWIN (AMINO ACIDS NOS, CARBOHYDRATES NOS, ELECTROLYTES NOS) [Concomitant]
  6. INTRAFAT (GLYCEROL, PHOSPHOLIPIDS, SOYA OIL) [Concomitant]

REACTIONS (5)
  - ALANINE AMINOTRANSFERASE INCREASED [None]
  - ASPARTATE AMINOTRANSFERASE INCREASED [None]
  - LIVER DISORDER [None]
  - MALNUTRITION [None]
  - PNEUMONIA [None]
